FAERS Safety Report 25099245 (Version 2)
Quarter: 2025Q3

REPORT INFORMATION
  Report Type: Spontaneous
  Country: US (occurrence: US)
  Receive Date: 20250320
  Receipt Date: 20250816
  Transmission Date: 20251020
  Serious: No
  Sender: ALEXION PHARMACEUTICALS
  Company Number: US-AstraZeneca-CH-00828565AM

PATIENT
  Age: 74 Year
  Sex: Male

DRUGS (1)
  1. FASENRA [Suspect]
     Active Substance: BENRALIZUMAB
     Indication: Asthma
     Dates: start: 202312

REACTIONS (1)
  - Ocular demodicosis [Not Recovered/Not Resolved]

NARRATIVE: CASE EVENT DATE: 20241101
